FAERS Safety Report 10975010 (Version 1)
Quarter: 2015Q2

REPORT INFORMATION
  Report Type: Spontaneous
  Country: US (occurrence: US)
  Receive Date: 20150401
  Receipt Date: 20150401
  Transmission Date: 20150821
  Serious: Yes (Other)
  Sender: FDA-Public Use
  Company Number: US-PFIZER INC-2015111840

PATIENT
  Age: 46 Year
  Sex: Male

DRUGS (3)
  1. VIAGRA [Suspect]
     Active Substance: SILDENAFIL CITRATE
     Dosage: 100 MG, AS NEEDED
  2. SKELAXIN [Suspect]
     Active Substance: METAXALONE
     Dosage: 800 MG, 3-4 DAY AS NEEDED
  3. CHANTIX [Suspect]
     Active Substance: VARENICLINE TARTRATE
     Dosage: 1 MG, 2X/DAY

REACTIONS (11)
  - Dizziness [Unknown]
  - Gastrooesophageal reflux disease [Unknown]
  - Deafness unilateral [Unknown]
  - Vestibular disorder [Unknown]
  - Balance disorder [Unknown]
  - Fatigue [Unknown]
  - Asthma [Unknown]
  - Tinnitus [Unknown]
  - Depression [Unknown]
  - Anxiety [Unknown]
  - Amnesia [Unknown]

NARRATIVE: CASE EVENT DATE: 201405
